FAERS Safety Report 18623282 (Version 1)
Quarter: 2020Q4

REPORT INFORMATION
  Report Type: Spontaneous
  Country: US (occurrence: US)
  Receive Date: 20201216
  Receipt Date: 20201216
  Transmission Date: 20210114
  Serious: No
  Sender: FDA-Public Use
  Company Number: US-BIOGEN-2020BI00913539

PATIENT
  Sex: Female

DRUGS (1)
  1. TYSABRI [Suspect]
     Active Substance: NATALIZUMAB
     Indication: MULTIPLE SCLEROSIS
     Route: 042
     Dates: start: 20150804

REACTIONS (6)
  - Therapeutic response shortened [Recovered/Resolved]
  - Paraesthesia [Unknown]
  - Hot flush [Unknown]
  - Prescribed underdose [Recovered/Resolved]
  - Hypoaesthesia [Unknown]
  - Fatigue [Recovered/Resolved]
